FAERS Safety Report 11757364 (Version 34)
Quarter: 2017Q1

REPORT INFORMATION
  Report Type: Report from Study
  Country: CA (occurrence: CA)
  Receive Date: 20151120
  Receipt Date: 20170202
  Transmission Date: 20170428
  Serious: Yes (Other)
  Sender: FDA-Public Use
  Company Number: CA-ROCHE-1604164

PATIENT
  Age: 79 Year
  Sex: Female
  Weight: 57 kg

DRUGS (17)
  1. AMLODIPINE [Concomitant]
     Active Substance: AMLODIPINE BESYLATE
  2. ADVAIR HFA [Concomitant]
     Active Substance: FLUTICASONE PROPIONATE\SALMETEROL XINAFOATE
  3. AVASTIN [Suspect]
     Active Substance: BEVACIZUMAB
     Route: 042
     Dates: start: 20150729
  4. AVASTIN [Suspect]
     Active Substance: BEVACIZUMAB
     Route: 042
     Dates: start: 20151028
  5. VITAMIN B12 [Concomitant]
     Active Substance: CYANOCOBALAMIN
  6. DIPHENHYDRAMINE HCL [Concomitant]
     Active Substance: DIPHENHYDRAMINE HYDROCHLORIDE
     Indication: PREMEDICATION
     Route: 048
     Dates: start: 20151028
  7. ROSUVASTATIN. [Concomitant]
     Active Substance: ROSUVASTATIN
  8. AVASTIN [Suspect]
     Active Substance: BEVACIZUMAB
     Route: 042
     Dates: start: 20160330
  9. ACETAMINOPHEN. [Concomitant]
     Active Substance: ACETAMINOPHEN
     Indication: PREMEDICATION
     Route: 048
     Dates: start: 20151028
  10. NASONEX [Concomitant]
     Active Substance: MOMETASONE FUROATE
  11. ZINCOFAX [Suspect]
     Active Substance: ZINC OXIDE
     Indication: VULVOVAGINAL PAIN
     Route: 065
  12. ZINCOFAX [Suspect]
     Active Substance: ZINC OXIDE
     Indication: VULVOVAGINAL PRURITUS
  13. TRAMADOL. [Concomitant]
     Active Substance: TRAMADOL
  14. AVASTIN [Suspect]
     Active Substance: BEVACIZUMAB
     Indication: SQUAMOUS CELL CARCINOMA OF THE VULVA
     Route: 042
     Dates: start: 20150617
  15. COUMADIN [Concomitant]
     Active Substance: WARFARIN SODIUM
  16. AVASTIN [Suspect]
     Active Substance: BEVACIZUMAB
     Route: 042
     Dates: start: 20160309
  17. AVASTIN [Suspect]
     Active Substance: BEVACIZUMAB
     Route: 042
     Dates: start: 20160210

REACTIONS (60)
  - Heart rate decreased [Unknown]
  - Blood urine present [Not Recovered/Not Resolved]
  - Blood pressure increased [Unknown]
  - International normalised ratio increased [Not Recovered/Not Resolved]
  - Heart rate decreased [Unknown]
  - White blood cells urine [Not Recovered/Not Resolved]
  - Specific gravity urine abnormal [Unknown]
  - Protein urine present [Not Recovered/Not Resolved]
  - Lymphocyte count decreased [Unknown]
  - Urine leukocyte esterase positive [Unknown]
  - Mean cell volume increased [Not Recovered/Not Resolved]
  - Alanine aminotransferase increased [Unknown]
  - Weight increased [Unknown]
  - Medication error [Unknown]
  - Incorrect drug administration rate [Unknown]
  - Localised infection [Unknown]
  - Off label use [Unknown]
  - White blood cell count decreased [Unknown]
  - Blood magnesium decreased [Unknown]
  - Blood lactate dehydrogenase increased [Not Recovered/Not Resolved]
  - Bilirubin urine present [Unknown]
  - Red blood cells urine [Unknown]
  - Mean cell haemoglobin increased [Recovered/Resolved]
  - Vulvovaginal pain [Not Recovered/Not Resolved]
  - Weight decreased [Not Recovered/Not Resolved]
  - Mean cell haemoglobin increased [Unknown]
  - Urine ketone body present [Unknown]
  - Haemoglobin increased [Unknown]
  - Vulval neoplasm [Unknown]
  - Incorrect dose administered [Unknown]
  - Heart rate decreased [Unknown]
  - Red blood cell count decreased [Unknown]
  - Mean cell haemoglobin concentration decreased [Unknown]
  - Red cell distribution width increased [Unknown]
  - Blood pressure increased [Unknown]
  - Platelet count decreased [Unknown]
  - Aspartate aminotransferase increased [Not Recovered/Not Resolved]
  - Urine abnormality [Unknown]
  - Bacterial test positive [Not Recovered/Not Resolved]
  - Mean cell volume increased [Not Recovered/Not Resolved]
  - Lichen sclerosus [Unknown]
  - Red blood cells urine positive [Not Recovered/Not Resolved]
  - Lymphocyte count decreased [Recovered/Resolved]
  - Vulvovaginal pruritus [Not Recovered/Not Resolved]
  - Red blood cells urine positive [Unknown]
  - White blood cells urine positive [Not Recovered/Not Resolved]
  - Haemoglobin decreased [Unknown]
  - Haematocrit decreased [Unknown]
  - Lymphocyte count decreased [Not Recovered/Not Resolved]
  - Urine analysis abnormal [Unknown]
  - Activated partial thromboplastin time prolonged [Unknown]
  - Incorrect drug administration rate [Unknown]
  - Urinary tract infection [Not Recovered/Not Resolved]
  - Thrombocytopenia [Not Recovered/Not Resolved]
  - Cardiac disorder [Unknown]
  - Cardiolipin antibody positive [Unknown]
  - Neutrophil count decreased [Unknown]
  - Cells in urine [Not Recovered/Not Resolved]
  - Urinary casts present [Unknown]
  - Haematocrit increased [Unknown]

NARRATIVE: CASE EVENT DATE: 20150728
